FAERS Safety Report 18266563 (Version 5)
Quarter: 2021Q4

REPORT INFORMATION
  Report Type: Report from Study
  Country: US (occurrence: US)
  Receive Date: 20200915
  Receipt Date: 20211104
  Transmission Date: 20220303
  Serious: Yes (Hospitalization)
  Sender: FDA-Public Use
  Company Number: NVSC2020US250863

PATIENT
  Age: 79 Year
  Sex: Female
  Weight: 72.109 kg

DRUGS (7)
  1. TREPROSTINIL [Suspect]
     Active Substance: TREPROSTINIL
     Indication: Pulmonary arterial hypertension
     Dosage: UNK (115 NG/KG/MIN)
     Route: 042
     Dates: start: 20190603
  2. TREPROSTINIL [Suspect]
     Active Substance: TREPROSTINIL
     Dosage: UNK UNK, CONT (115 NG/KG/MIN)
     Route: 042
     Dates: start: 20190603
  3. WARFARIN [Concomitant]
     Active Substance: WARFARIN
     Indication: Hypertension
     Dosage: UNK
     Route: 065
  4. LETAIRIS [Concomitant]
     Active Substance: AMBRISENTAN
     Indication: Hypertension
     Dosage: UNK
     Route: 065
  5. ADCIRCA [Concomitant]
     Active Substance: TADALAFIL
     Indication: Pulmonary arterial hypertension
     Dosage: UNK
     Route: 065
  6. CHLORPHENIRAMINE MALEATE [Concomitant]
     Active Substance: CHLORPHENIRAMINE MALEATE
     Indication: Product used for unknown indication
     Dosage: UNK
     Route: 065
  7. ZYRTEC [Concomitant]
     Active Substance: CETIRIZINE HYDROCHLORIDE
     Indication: Product used for unknown indication
     Dosage: 10 MG, QD (1 TABLET DAILY)
     Route: 065

REACTIONS (9)
  - Chest pain [Unknown]
  - Faeces discoloured [Unknown]
  - Abdominal pain [Unknown]
  - Asthenia [Unknown]
  - Hypersensitivity [Unknown]
  - Humerus fracture [Unknown]
  - Fall [Unknown]
  - Limb injury [Unknown]
  - Pain [Unknown]

NARRATIVE: CASE EVENT DATE: 20201205
